FAERS Safety Report 15790702 (Version 1)
Quarter: 2019Q1

REPORT INFORMATION
  Report Type: Spontaneous
  Country: CN (occurrence: CN)
  Receive Date: 20190104
  Receipt Date: 20190104
  Transmission Date: 20190417
  Serious: Yes (Hospitalization)
  Sender: FDA-Public Use
  Company Number: CN-009507513-1812CHN010811

PATIENT
  Age: 9 Decade
  Sex: Female

DRUGS (1)
  1. MOMETASONE FUROATE. [Suspect]
     Active Substance: MOMETASONE FUROATE
     Indication: VULVAL LEUKOPLAKIA
     Dosage: UNK
     Dates: start: 20181108

REACTIONS (6)
  - Throat tightness [Recovering/Resolving]
  - Dizziness [Recovering/Resolving]
  - Head discomfort [Recovering/Resolving]
  - Off label use [Unknown]
  - Drug effective for unapproved indication [Unknown]
  - Palpitations [Recovering/Resolving]

NARRATIVE: CASE EVENT DATE: 2018
